FAERS Safety Report 17228158 (Version 2)
Quarter: 2020Q4

REPORT INFORMATION
  Report Type: Report from Study
  Country: ID (occurrence: ID)
  Receive Date: 20200103
  Receipt Date: 20201222
  Transmission Date: 20210113
  Serious: Yes (Death)
  Sender: FDA-Public Use
  Company Number: ID-ASTRAZENECA-2020SE00705

PATIENT
  Sex: Female

DRUGS (2)
  1. FASLODEX [Suspect]
     Active Substance: FULVESTRANT
     Indication: BREAST CANCER METASTATIC
     Dosage: 500.0MG UNKNOWN
     Route: 030
     Dates: start: 20191218
  2. FASLODEX [Suspect]
     Active Substance: FULVESTRANT
     Indication: MENOPAUSAL SYMPTOMS
     Dosage: 500.0MG UNKNOWN
     Route: 030
     Dates: start: 20191218

REACTIONS (1)
  - General physical health deterioration [Fatal]
